FAERS Safety Report 5153639-2 (Version None)
Quarter: 2006Q4

REPORT INFORMATION
  Report Type: 
  Country: None (occurrence: None)
  Receive Date: 20061114
  Receipt Date: 20061029
  Transmission Date: 20070319
  Serious: Yes (Life-Threatening, Hospitalization)
  Sender: FDA-Public Use
  Company Number: 2006084874

PATIENT
  Age: 59 Year
  Sex: Male
  Weight: 70 kg

DRUGS (8)
  1. SUTENT [Suspect]
     Indication: METASTATIC RENAL CELL CARCINOMA
     Dosage: 50 MG (50 MG, 1 IN 1 D), ORAL
     Route: 048
     Dates: start: 20060609
  2. ZOMETA [Concomitant]
  3. DICLO-DIVIDO LONG (DICLOFENAC SODIUM) [Concomitant]
  4. ACETAMINOPHEN [Concomitant]
  5. PANTOPRAZOL (PANTOPRAZOLE) [Concomitant]
  6. MUTAFLOR (ESCHERICHIA COLI) [Concomitant]
  7. LACTULOSE [Concomitant]
  8. ARANESP [Concomitant]

REACTIONS (17)
  - DIARRHOEA [None]
  - DRUG EXPOSURE DURING PREGNANCY [None]
  - FATIGUE [None]
  - INTESTINAL PERFORATION [None]
  - LEUKOPENIA [None]
  - METASTASES TO LUNG [None]
  - METASTASES TO LYMPH NODES [None]
  - NECROTISING FASCIITIS [None]
  - PALMAR-PLANTAR ERYTHRODYSAESTHESIA SYNDROME [None]
  - PERFORMANCE STATUS DECREASED [None]
  - RENAL FAILURE [None]
  - RENAL FAILURE ACUTE [None]
  - SALMONELLOSIS [None]
  - SEPSIS [None]
  - SKIN GRAFT [None]
  - TACHYCARDIA [None]
  - THROMBOCYTOPENIA [None]
